FAERS Safety Report 9559556 (Version 1)
Quarter: 2013Q3

REPORT INFORMATION
  Report Type: Spontaneous
  Country: US (occurrence: None)
  Receive Date: 20130924
  Receipt Date: 20130924
  Transmission Date: 20140515
  Serious: Yes (Hospitalization)
  Sender: FDA-Public Use
  Company Number: US13002648

PATIENT
  Age: 43 Year
  Sex: Female

DRUGS (6)
  1. CETAPHIL DAILY FACIAL MOISTURIZER SPF15 [Suspect]
     Indication: DRY SKIN PROPHYLAXIS
     Dosage: INTERMITENT USE (AS REQUIRED), TOPICAL
     Route: 061
     Dates: start: 20130813, end: 20130819
  2. SYNTHROID (TABLETS) (LEVOTHYROXINE SODIUM0 [Concomitant]
  3. WITCH HAZEL (NULL) [Concomitant]
  4. VASELINE (PARAFFIN SOFT) [Concomitant]
  5. ANTIBIOTIC (NULL) [Concomitant]
  6. COVER GIRL FRESH LOOK (NULL) [Concomitant]

REACTIONS (18)
  - Malaise [None]
  - Feeling abnormal [None]
  - Asthenia [None]
  - Vision blurred [None]
  - Toothache [None]
  - Ear pain [None]
  - Tinnitus [None]
  - Feeling hot [None]
  - Hypoaesthesia [None]
  - Nausea [None]
  - Poisoning [None]
  - Movement disorder [None]
  - Burning sensation [None]
  - Joint range of motion decreased [None]
  - Bone disorder [None]
  - Visual impairment [None]
  - Sinusitis [None]
  - Pain in jaw [None]
